FAERS Safety Report 5031564-5 (Version None)
Quarter: 2006Q2

REPORT INFORMATION
  Report Type: 
  Country: None (occurrence: None)
  Receive Date: 20060621
  Receipt Date: 20060616
  Transmission Date: 20061013
  Serious: Yes (Congenital Anomaly)
  Sender: FDA-Public Use
  Company Number: US-GLAXOSMITHKLINE-A0609334A

PATIENT
  Sex: Male
  Weight: 3 kg

DRUGS (4)
  1. COMBIVIR [Suspect]
     Indication: HIV INFECTION
     Dosage: 2TAB PER DAY
     Dates: start: 20051018
  2. ZIDOVUDINE [Suspect]
     Indication: HIV INFECTION
     Dates: start: 20060323, end: 20060323
  3. ZIDOVUDINE [Suspect]
     Dates: start: 20060323, end: 20060323
  4. NELFINAVIR [Suspect]
     Indication: HIV INFECTION
     Dosage: 2500MG PER DAY
     Dates: start: 20051018

REACTIONS (1)
  - PILONIDAL CYST CONGENITAL [None]
